FAERS Safety Report 4451816-7 (Version None)
Quarter: 2004Q3

REPORT INFORMATION
  Report Type: 
  Country: None (occurrence: None)
  Receive Date: 20040915
  Receipt Date: 20040915
  Transmission Date: 20050211
  Serious: Yes (Hospitalization)
  Sender: FDA-Public Use
  Company Number: None

PATIENT
  Age: 54 Year
  Sex: Male

DRUGS (16)
  1. IBUPROFEN [Suspect]
     Indication: BACK PAIN
     Dosage: 800MG, TIW, PO
     Route: 048
     Dates: start: 20040126, end: 20040203
  2. ALEVE COLD AND SINUS [Suspect]
     Dates: start: 20040126, end: 20040203
  3. ALBUTEROL [Concomitant]
  4. ATENOLOL [Concomitant]
  5. BUPROPION (WELLBUTRIN SR) [Concomitant]
  6. CARBAMIDE PEROXIDE [Concomitant]
  7. CYANOCOBALAMIN [Concomitant]
  8. HYDROXYCHLOROQUINE SULFATE [Concomitant]
  9. NICOTINE [Concomitant]
  10. OMEPRAZOLE [Concomitant]
  11. SILDENAFIL CITRATE [Concomitant]
  12. SUNSCREEN 30 (PABA FREE) [Concomitant]
  13. SYRINGE, TUBERCULIN [Concomitant]
  14. TACROLIMUS [Concomitant]
  15. TRAZODONE HCL [Concomitant]
  16. TUBERCULIN [Concomitant]

REACTIONS (3)
  - ALCOHOL USE [None]
  - DIARRHOEA HAEMORRHAGIC [None]
  - LOWER GASTROINTESTINAL HAEMORRHAGE [None]
